FAERS Safety Report 20152801 (Version 1)
Quarter: 2021Q4

REPORT INFORMATION
  Report Type: Spontaneous
  Country: US (occurrence: US)
  Receive Date: 20211206
  Receipt Date: 20211206
  Transmission Date: 20220303
  Serious: Yes (Other)
  Sender: FDA-Public Use
  Company Number: US-ELI_LILLY_AND_COMPANY-US202111011203

PATIENT
  Sex: Female

DRUGS (6)
  1. BASAGLAR [Suspect]
     Active Substance: INSULIN GLARGINE
     Indication: Type 2 diabetes mellitus
     Dosage: 70 U, DAILY
     Route: 058
     Dates: start: 2019
  2. BASAGLAR [Suspect]
     Active Substance: INSULIN GLARGINE
     Indication: Type 2 diabetes mellitus
     Dosage: 70 U, DAILY
     Route: 058
     Dates: start: 2019
  3. BASAGLAR [Suspect]
     Active Substance: INSULIN GLARGINE
     Dosage: 70 U, DAILY
     Route: 058
     Dates: start: 2019
  4. BASAGLAR [Suspect]
     Active Substance: INSULIN GLARGINE
     Dosage: 70 U, DAILY
     Route: 058
     Dates: start: 2019
  5. HUMALOG [Suspect]
     Active Substance: INSULIN LISPRO
     Indication: Type 2 diabetes mellitus
     Dosage: UNK UNK, PRN
     Route: 058
     Dates: start: 2020
  6. METFORMIN [Concomitant]
     Active Substance: METFORMIN HYDROCHLORIDE
     Indication: Type 2 diabetes mellitus
     Dosage: 1000 MG, DAILY

REACTIONS (1)
  - Blood glucose increased [Recovered/Resolved]
